FAERS Safety Report 9910182 (Version 2)
Quarter: 2014Q1

REPORT INFORMATION
  Report Type: Report from Study
  Country: DE (occurrence: DE)
  Receive Date: 20140219
  Receipt Date: 20140219
  Transmission Date: 20141002
  Serious: Yes (Hospitalization)
  Sender: FDA-Public Use
  Company Number: DE-SANOFI-AVENTIS-2013SA049907

PATIENT
  Age: 75 Year
  Sex: Male
  Weight: 133 kg

DRUGS (17)
  1. MULTAQ [Suspect]
     Indication: ATRIAL FIBRILLATION
     Route: 048
     Dates: start: 20120215
  2. ANTITHROMBOTIC AGENTS [Concomitant]
     Indication: THROMBOSIS PROPHYLAXIS
     Route: 065
     Dates: start: 20120123
  3. XARELTO [Concomitant]
     Route: 065
  4. VILDAGLIPTIN [Concomitant]
     Route: 065
  5. METFORMIN [Concomitant]
     Route: 065
  6. BISOPROLOL [Concomitant]
     Route: 065
  7. AMLODIPINE [Concomitant]
     Route: 065
  8. SPIRONOLACTONE [Concomitant]
     Route: 065
  9. MOXONIDINE [Concomitant]
     Route: 065
  10. TORASEMIDE [Concomitant]
     Route: 065
  11. HYDROCHLOROTHIAZIDE [Concomitant]
     Route: 065
  12. DIHYDRALAZINE SULFATE [Concomitant]
     Route: 065
  13. FEBUXOSTAT [Concomitant]
     Route: 065
  14. PANTOPRAZOLE [Concomitant]
     Route: 065
  15. URAPIDIL [Concomitant]
     Route: 065
  16. BETA BLOCKING AGENTS [Concomitant]
     Indication: THROMBOSIS PROPHYLAXIS
     Route: 065
  17. THROMBIN [Concomitant]
     Route: 048
     Dates: start: 20130706

REACTIONS (5)
  - Atrial fibrillation [Recovered/Resolved]
  - Adverse reaction [Recovered/Resolved]
  - Sinus bradycardia [Recovered/Resolved]
  - Dyspnoea [Recovered/Resolved]
  - Heart rate decreased [Recovered/Resolved]
